FAERS Safety Report 8298062-7 (Version None)
Quarter: 2012Q2

REPORT INFORMATION
  Report Type: 
  Country: None (occurrence: None)
  Receive Date: 20120419
  Receipt Date: 20120321
  Transmission Date: 20120825
  Serious: Yes (Hospitalization)
  Sender: FDA-Public Use
  Company Number: US-BAXTER-2012BAX000309

PATIENT
  Sex: Female

DRUGS (2)
  1. DIANEAL LOW CALCIUM W/ DEXTROSE 1.5% [Suspect]
     Route: 033
  2. DIANEAL LOW CALCIUM W/ DEXTROSE 1.5% [Suspect]
     Indication: PERITONEAL DIALYSIS
     Route: 033

REACTIONS (5)
  - PNEUMONIA [None]
  - TREATMENT NONCOMPLIANCE [None]
  - SPINAL FRACTURE [None]
  - INJURY [None]
  - OEDEMA [None]
